FAERS Safety Report 24965377 (Version 1)
Quarter: 2025Q1

REPORT INFORMATION
  Report Type: Spontaneous
  Country: US (occurrence: US)
  Receive Date: 20250213
  Receipt Date: 20250213
  Transmission Date: 20250409
  Serious: No
  Sender: ABBVIE
  Company Number: US-ABBVIE-6130860

PATIENT
  Age: 9 Year
  Weight: 58.967 kg

DRUGS (1)
  1. DEPAKOTE ER [Suspect]
     Active Substance: DIVALPROEX SODIUM
     Indication: Behaviour disorder
     Route: 065

REACTIONS (1)
  - Product use in unapproved indication [Unknown]
